FAERS Safety Report 10277975 (Version 1)
Quarter: 2014Q3

REPORT INFORMATION
  Report Type: Spontaneous
  Country: US (occurrence: US)
  Receive Date: 20140704
  Receipt Date: 20140704
  Transmission Date: 20150326
  Serious: No
  Sender: FDA-Public Use
  Company Number: US-ASTRAZENECA-2014SE46797

PATIENT

DRUGS (1)
  1. PULMICORT FLEXHALER [Suspect]
     Active Substance: BUDESONIDE
     Route: 055

REACTIONS (5)
  - Bronchospasm [Unknown]
  - Intentional product misuse [Unknown]
  - Poor quality sleep [Unknown]
  - Hypersensitivity [Unknown]
  - Circumstance or information capable of leading to medication error [Unknown]
